FAERS Safety Report 14980175 (Version 2)
Quarter: 2018Q2

REPORT INFORMATION
  Report Type: Spontaneous
  Country: US (occurrence: US)
  Receive Date: 20180606
  Receipt Date: 20180618
  Transmission Date: 20180711
  Serious: Yes (Other)
  Sender: FDA-Public Use
  Company Number: US-NAPPMUNDI-USA-2018-0143809

PATIENT
  Sex: Male

DRUGS (4)
  1. ALCOHOL. [Suspect]
     Active Substance: ALCOHOL
     Indication: PRODUCT USED FOR UNKNOWN INDICATION
     Dosage: UNK
     Route: 048
  2. DILAUDID [Suspect]
     Active Substance: HYDROMORPHONE HYDROCHLORIDE
     Dosage: 12 MG, UNK
     Route: 048
  3. DILAUDID [Suspect]
     Active Substance: HYDROMORPHONE HYDROCHLORIDE
     Indication: PAIN
     Dosage: 8 MG, UNK
     Route: 048
  4. OXYCODONE HYDROCHLORIDE (SIMILAR TO NDA 22-272) [Suspect]
     Active Substance: OXYCODONE HYDROCHLORIDE
     Indication: PAIN
     Dosage: 30 MG, UNK
     Route: 048

REACTIONS (13)
  - Heart rate increased [Unknown]
  - Unevaluable event [Unknown]
  - Crying [Unknown]
  - Inadequate analgesia [Unknown]
  - Suicidal ideation [Unknown]
  - Erythema [Unknown]
  - Panic attack [Unknown]
  - Ocular hyperaemia [Unknown]
  - Insomnia [Unknown]
  - Drug abuse [Unknown]
  - Discomfort [Unknown]
  - Tremor [Unknown]
  - Drug tolerance [Unknown]
